FAERS Safety Report 10213414 (Version 1)
Quarter: 2014Q2

REPORT INFORMATION
  Report Type: Spontaneous
  Country: CN (occurrence: None)
  Receive Date: 20140529
  Receipt Date: 20140529
  Transmission Date: 20141212
  Serious: Yes (Other)
  Sender: FDA-Public Use
  Company Number: FK201401885

PATIENT
  Age: 71 Year
  Sex: Male

DRUGS (1)
  1. INTRALIPID 20% [Suspect]
     Indication: MALNUTRITION
     Route: 042
     Dates: start: 20130404, end: 20130404

REACTIONS (3)
  - Chills [None]
  - Tremor [None]
  - Heart rate increased [None]
